FAERS Safety Report 6268695-8 (Version None)
Quarter: 2009Q3

REPORT INFORMATION
  Report Type: 
  Country: None (occurrence: None)
  Receive Date: 20090714
  Receipt Date: 20090714
  Transmission Date: 20100115
  Serious: No
  Sender: FDA-Public Use
  Company Number: None

PATIENT
  Age: 66 Year
  Sex: Female
  Weight: 64.8644 kg

DRUGS (2)
  1. LYRICA [Suspect]
     Indication: ARTHRALGIA
     Dates: start: 20090610, end: 20090624
  2. LYRICA [Suspect]
     Indication: PAIN IN EXTREMITY
     Dates: start: 20090610, end: 20090624

REACTIONS (9)
  - AMNESIA [None]
  - CRYING [None]
  - DYSGRAPHIA [None]
  - MOTOR DYSFUNCTION [None]
  - NERVOUS SYSTEM DISORDER [None]
  - OEDEMA MOUTH [None]
  - OROPHARYNGEAL BLISTERING [None]
  - PHARYNGEAL OEDEMA [None]
  - TONGUE BLISTERING [None]
